FAERS Safety Report 13486369 (Version 1)
Quarter: 2017Q2

REPORT INFORMATION
  Report Type: Spontaneous
  Country: CN (occurrence: CN)
  Receive Date: 20170426
  Receipt Date: 20170426
  Transmission Date: 20170830
  Serious: Yes (Other)
  Sender: FDA-Public Use
  Company Number: CN-BAXTER-2017BAX017507

PATIENT
  Age: 47 Year
  Sex: Male
  Weight: 58 kg

DRUGS (3)
  1. METRONIDAZOLE SODIUM [Suspect]
     Active Substance: METRONIDAZOLE SODIUM
     Indication: BACTERIAL INFECTION
     Route: 041
     Dates: start: 20161125, end: 20161125
  2. FULEXIN [Suspect]
     Active Substance: CEFUROXIME SODIUM
     Indication: BACTERIAL INFECTION
     Route: 041
     Dates: start: 20161125, end: 20161125
  3. 0.9% SODIUM CHLORIDE INJECTION [Suspect]
     Active Substance: SODIUM CHLORIDE
     Indication: MEDICATION DILUTION
     Route: 041
     Dates: start: 20161125, end: 20161125

REACTIONS (1)
  - Syncope [Recovered/Resolved]

NARRATIVE: CASE EVENT DATE: 20161125
